FAERS Safety Report 4898802-0 (Version None)
Quarter: 2006Q1

REPORT INFORMATION
  Report Type: 
  Country: None (occurrence: None)
  Receive Date: 20060105
  Receipt Date: 20051014
  Transmission Date: 20060701
  Serious: Yes (Other)
  Sender: FDA-Public Use
  Company Number: 2005143284

PATIENT
  Age: 26 Year
  Sex: Female
  Weight: 115.6672 kg

DRUGS (3)
  1. ZMAX [Suspect]
     Indication: BRONCHITIS
     Dosage: (QD)
     Dates: start: 20051010, end: 20051010
  2. ZMAX [Suspect]
     Indication: SINUSITIS
     Dosage: (QD)
     Dates: start: 20051010, end: 20051010
  3. METHADONE HCL [Concomitant]

REACTIONS (4)
  - ABDOMINAL PAIN UPPER [None]
  - FLATULENCE [None]
  - GASTRITIS [None]
  - WHITE BLOOD CELL COUNT INCREASED [None]
